FAERS Safety Report 6265551-6 (Version None)
Quarter: 2009Q3

REPORT INFORMATION
  Report Type: 
  Country: None (occurrence: None)
  Receive Date: 20090713
  Receipt Date: 20090610
  Transmission Date: 20100115
  Serious: No
  Sender: FDA-Public Use
  Company Number: US-BAYER-200824184NA

PATIENT
  Age: 45 Year
  Sex: Female
  Weight: 64 kg

DRUGS (1)
  1. MIRENA [Suspect]
     Indication: CONTRACEPTION
     Dosage: 20 UG/DAY CONTINUOUS
     Route: 015
     Dates: start: 20080429

REACTIONS (4)
  - ABDOMINAL PAIN [None]
  - POST PROCEDURAL HAEMORRHAGE [None]
  - VAGINAL HAEMORRHAGE [None]
  - VAGINITIS BACTERIAL [None]
